FAERS Safety Report 7718224-4 (Version None)
Quarter: 2011Q3

REPORT INFORMATION
  Report Type: 
  Country: None (occurrence: None)
  Receive Date: 20110830
  Receipt Date: 20110819
  Transmission Date: 20111222
  Serious: Yes (Other)
  Sender: FDA-Public Use
  Company Number: PHHY2011BE73359

PATIENT
  Weight: 10 kg

DRUGS (1)
  1. METHERGINE [Suspect]
     Dosage: 20 DRP, UNK
     Dates: start: 20110101

REACTIONS (1)
  - WRONG DRUG ADMINISTERED [None]
